FAERS Safety Report 7880995-4 (Version None)
Quarter: 2011Q4

REPORT INFORMATION
  Report Type: 
  Country: None (occurrence: None)
  Receive Date: 20111101
  Receipt Date: 20111021
  Transmission Date: 20120403
  Serious: Yes (Other)
  Sender: FDA-Public Use
  Company Number: US-GILEAD-2011-0045808

PATIENT
  Age: 24 Year
  Sex: Female

DRUGS (4)
  1. NORVIR [Concomitant]
     Indication: HIV INFECTION
     Dosage: 100 MG, QD
     Route: 048
     Dates: start: 20110308, end: 20110407
  2. KALETRA [Concomitant]
     Indication: HIV INFECTION
     Dosage: 8 DF, QD
     Route: 065
     Dates: start: 20110408
  3. EMTRICITABINE/TENOFOVIR DISOPROXIL FUMARATE [Suspect]
     Indication: HIV INFECTION
     Dosage: UNK
     Route: 048
     Dates: start: 20110308
  4. PREZISTA                           /05513801/ [Concomitant]
     Indication: HIV INFECTION
     Dosage: 800 MG, QD
     Route: 048
     Dates: start: 20110308, end: 20110407

REACTIONS (1)
  - ABORTION SPONTANEOUS [None]
